FAERS Safety Report 16341207 (Version 1)
Quarter: 2019Q2

REPORT INFORMATION
  Report Type: Spontaneous
  Country: US (occurrence: US)
  Receive Date: 20190522
  Receipt Date: 20190522
  Transmission Date: 20190711
  Serious: No
  Sender: FDA-Public Use
  Company Number: US-AMGEN-USASP2019079689

PATIENT

DRUGS (4)
  1. PREDNISONE. [Concomitant]
     Active Substance: PREDNISONE
     Indication: EXPOSURE DURING PREGNANCY
     Dosage: 25 MILLIGRAM, BID THEN 10 MILLIGRAM QD THEN 10 MILLIGRAM BID
     Route: 064
  2. ASPIRIN 81 [Concomitant]
     Active Substance: ASPIRIN
     Indication: EXPOSURE DURING PREGNANCY
     Dosage: 81 MILLIGRAM, QD
     Route: 064
  3. ENBREL [Suspect]
     Active Substance: ETANERCEPT
     Indication: EXPOSURE DURING PREGNANCY
     Dosage: UNK
     Route: 064
  4. AZATHIOPRINE. [Concomitant]
     Active Substance: AZATHIOPRINE
     Indication: EXPOSURE DURING PREGNANCY
     Dosage: 50 MILLIGRAM, BID
     Route: 064

REACTIONS (1)
  - Premature baby [Unknown]
